FAERS Safety Report 7280676-4 (Version None)
Quarter: 2011Q1

REPORT INFORMATION
  Report Type: 
  Country: None (occurrence: None)
  Receive Date: 20110208
  Receipt Date: 20110207
  Transmission Date: 20110831
  Serious: Yes (Hospitalization, Other)
  Sender: FDA-Public Use
  Company Number: A0908295A

PATIENT
  Age: 47 Year
  Sex: Female
  Weight: 77.1 kg

DRUGS (2)
  1. FLOLAN [Suspect]
     Route: 065
  2. FLOLAN [Suspect]
     Indication: PULMONARY ARTERIAL HYPERTENSION
     Route: 065
     Dates: start: 20070419

REACTIONS (4)
  - FALL [None]
  - STAPHYLOCOCCAL INFECTION [None]
  - HEAD INJURY [None]
  - DEVICE RELATED INFECTION [None]
